FAERS Safety Report 6903005-1 (Version None)
Quarter: 2010Q3

REPORT INFORMATION
  Report Type: 
  Country: None (occurrence: None)
  Receive Date: 20100803
  Receipt Date: 20080724
  Transmission Date: 20110219
  Serious: No
  Sender: FDA-Public Use
  Company Number: US-PFIZER INC-2008061917

PATIENT
  Sex: Female
  Weight: 154.5 kg

DRUGS (6)
  1. LYRICA [Suspect]
     Indication: FIBROMYALGIA
     Dates: start: 20080714, end: 20080720
  2. ATENOLOL [Concomitant]
  3. SYNTHROID [Concomitant]
  4. WELLBUTRIN [Concomitant]
  5. ACIPHEX [Concomitant]
  6. LANTUS [Concomitant]

REACTIONS (1)
  - DIZZINESS [None]
